FAERS Safety Report 22921116 (Version 2)
Quarter: 2024Q3

REPORT INFORMATION
  Report Type: Spontaneous
  Country: US (occurrence: None)
  Receive Date: 20230908
  Receipt Date: 20240906
  Transmission Date: 20241016
  Serious: No
  Sender: DOMPE FARMACEUTICI
  Company Number: US-FARMAPROD-202305-1303

PATIENT
  Age: 86 Year
  Sex: Male

DRUGS (22)
  1. OXERVATE [Suspect]
     Active Substance: CENEGERMIN-BKBJ
     Indication: Neurotrophic keratopathy
     Route: 047
     Dates: start: 20230424, end: 20230619
  2. OXERVATE [Suspect]
     Active Substance: CENEGERMIN-BKBJ
     Route: 047
     Dates: start: 20230821
  3. XIIDRA [Concomitant]
     Active Substance: LIFITEGRAST
  4. OMEPRAZOLE [Concomitant]
     Active Substance: OMEPRAZOLE
     Dosage: DELAYED RELEASE
  5. METOPROLOL SUCCINATE [Concomitant]
     Active Substance: METOPROLOL SUCCINATE
  6. FUROSEMIDE [Concomitant]
     Active Substance: FUROSEMIDE
  7. ATORVASTATIN CALCIUM [Concomitant]
     Active Substance: ATORVASTATIN CALCIUM
  8. POTASSIUM CHLORIDE [Concomitant]
     Active Substance: POTASSIUM CHLORIDE
  9. NAPROXEN [Concomitant]
     Active Substance: NAPROXEN
  10. GABAPENTIN [Concomitant]
     Active Substance: GABAPENTIN
  11. TAMSULOSIN HYDROCHLORIDE [Concomitant]
     Active Substance: TAMSULOSIN HYDROCHLORIDE
  12. VITAMIN D3 [Concomitant]
     Active Substance: CHOLECALCIFEROL
  13. GARLIC [Concomitant]
     Active Substance: GARLIC
  14. ASPIRIN [Concomitant]
     Active Substance: ASPIRIN
     Dosage: DELAYED RELEASE
  15. VITAMIN B12 [Concomitant]
     Active Substance: CYANOCOBALAMIN
  16. VITAMIN C [Concomitant]
     Active Substance: ASCORBIC ACID
  17. MINERALS\VITAMINS [Concomitant]
     Active Substance: MINERALS\VITAMINS
     Dosage: 0.4-300-250
  18. MILK OF MAGNESIA [Concomitant]
     Active Substance: MAGNESIUM HYDROXIDE
  19. GLUCOSAMINE-CHONDROITIN-MSM [Concomitant]
  20. IRON [Concomitant]
     Active Substance: IRON
     Dosage: 5MG/0.5ML
  21. GENTEAL TEARS [Concomitant]
     Active Substance: DEXTRAN 70\HYPROMELLOSE 2910 (4000 MPA.S)
     Dosage: 0.1%-0.3%
  22. GAS-X [Concomitant]
     Active Substance: DIMETHICONE

REACTIONS (3)
  - Eye irritation [Unknown]
  - Photophobia [Unknown]
  - Product dose omission issue [Unknown]

NARRATIVE: CASE EVENT DATE: 20230829
